FAERS Safety Report 14817332 (Version 1)
Quarter: 2018Q2

REPORT INFORMATION
  Report Type: Spontaneous
  Country: US (occurrence: US)
  Receive Date: 20180426
  Receipt Date: 20180426
  Transmission Date: 20180711
  Serious: Yes (Other)
  Sender: FDA-Public Use
  Company Number: US-TEVA-2018-US-885023

PATIENT
  Sex: Female

DRUGS (2)
  1. LOSARTAN. [Suspect]
     Active Substance: LOSARTAN
     Route: 065
     Dates: start: 201710, end: 201801
  2. LOSARTAN. [Suspect]
     Active Substance: LOSARTAN
     Indication: PERITONEAL DISORDER
     Route: 065
     Dates: start: 201710, end: 201801

REACTIONS (2)
  - Congenital cystic kidney disease [Unknown]
  - Drug prescribing error [Unknown]

NARRATIVE: CASE EVENT DATE: 201710
